FAERS Safety Report 7564595-1 (Version None)
Quarter: 2011Q2

REPORT INFORMATION
  Report Type: 
  Country: None (occurrence: None)
  Receive Date: 20110622
  Receipt Date: 20100618
  Transmission Date: 20111010
  Serious: Yes (Death)
  Sender: FDA-Public Use
  Company Number: US-MYLANLABS-2010S1011073

PATIENT
  Age: 36 Year
  Sex: Male

DRUGS (4)
  1. THIOTHIXENE /00099101/ [Concomitant]
  2. CITALOPRAM HYDROBROMIDE [Concomitant]
  3. OXCARBAZEPINE [Concomitant]
  4. CLOZAPINE [Suspect]
     Route: 048
     Dates: end: 20100101

REACTIONS (1)
  - DEATH [None]
